FAERS Safety Report 9478235 (Version 1)
Quarter: 2013Q3

REPORT INFORMATION
  Report Type: Spontaneous
  Country: DK (occurrence: None)
  Receive Date: 20130809
  Receipt Date: 20130809
  Transmission Date: 20140515
  Serious: Yes (Hospitalization)
  Sender: FDA-Public Use
  Company Number: 2013037203

PATIENT
  Age: 40 Year
  Sex: Female

DRUGS (1)
  1. PRIVIGEN [Suspect]
     Indication: GUILLAIN-BARRE SYNDROME
     Route: 042
     Dates: start: 20130520, end: 20130523

REACTIONS (2)
  - Rash generalised [None]
  - Off label use [None]
